FAERS Safety Report 10542403 (Version 1)
Quarter: 2014Q4

REPORT INFORMATION
  Report Type: Report from Study
  Country: ZA (occurrence: ZA)
  Receive Date: 20141026
  Receipt Date: 20141026
  Transmission Date: 20150529
  Serious: Yes (Death, Hospitalization, Other)
  Sender: FDA-Public Use
  Company Number: PHHY2014ZA138962

PATIENT
  Age: 95 Year
  Sex: Female

DRUGS (2)
  1. ACLASTA [Suspect]
     Active Substance: ZOLEDRONIC ACID
     Indication: OSTEOPOROSIS
     Dosage: 5 MG, UNK
     Route: 042
     Dates: start: 2011
  2. ACLASTA [Suspect]
     Active Substance: ZOLEDRONIC ACID
     Dosage: 5 MG, UNK
     Route: 042
     Dates: start: 2012

REACTIONS (6)
  - Pneumonia [Unknown]
  - Dementia Alzheimer^s type [Fatal]
  - Dementia [Fatal]
  - Lung disorder [Fatal]
  - Feeding disorder [Unknown]
  - Organ failure [Fatal]

NARRATIVE: CASE EVENT DATE: 2012
